FAERS Safety Report 4594779-6 (Version None)
Quarter: 2005Q1

REPORT INFORMATION
  Report Type: 
  Country: None (occurrence: None)
  Receive Date: 20050301
  Receipt Date: 20050218
  Transmission Date: 20050727
  Serious: Yes (Hospitalization, Other)
  Sender: FDA-Public Use
  Company Number: US-NOVOPROD-242421

PATIENT
  Age: 33 Year
  Sex: Female

DRUGS (2)
  1. NOVOLOG [Suspect]
     Indication: ILL-DEFINED DISORDER
     Dosage: 200 IU, SINGLE
     Route: 058
  2. INSULIN GLARGINE [Suspect]
     Indication: SUICIDE ATTEMPT
     Dosage: 300 IU, SINGLE
     Route: 058

REACTIONS (2)
  - HYPOGLYCAEMIA [None]
  - INTENTIONAL MISUSE [None]
